FAERS Safety Report 18922872 (Version 1)
Quarter: 2021Q1

REPORT INFORMATION
  Report Type: Spontaneous
  Country: DE (occurrence: DE)
  Receive Date: 20210222
  Receipt Date: 20210222
  Transmission Date: 20210420
  Serious: Yes (Life-Threatening, Hospitalization)
  Sender: FDA-Public Use
  Company Number: DE-MYLANLABS-2021M1010756

PATIENT
  Age: 96 Year
  Sex: Male

DRUGS (10)
  1. ISOPHANE INSULIN [Suspect]
     Active Substance: INSULIN NOS
     Indication: PRODUCT USED FOR UNKNOWN INDICATION
     Dosage: 12 IE, 1?0?0?0, INJECTION/INFUSION SOLUTION
     Route: 058
  2. CARVEDILOL. [Concomitant]
     Active Substance: CARVEDILOL
     Dosage: 6.25 MG, 1?0?0?0, TABLETTEN
  3. TORASEMIDE [Suspect]
     Active Substance: TORSEMIDE
     Indication: PRODUCT USED FOR UNKNOWN INDICATION
     Dosage: 10 MG, 2?0?1?0, TABLETTEN
  4. HYALURONSAEURE [Concomitant]
     Dosage: BEDARF, TROPFEN
     Route: 047
  5. METAMIZOL                          /06276701/ [Concomitant]
     Active Substance: METAMIZOLE
     Dosage: 500 MG, BEDARF, TABLETTEN
  6. ATORVASTATIN [Concomitant]
     Active Substance: ATORVASTATIN
     Dosage: 20 MG, 0?0?0?1, TABLETTEN
  7. HUMINSULIN PROFIL III 30/70 300I.E. 100I.E./ML [Suspect]
     Active Substance: INSULIN HUMAN
     Indication: PRODUCT USED FOR UNKNOWN INDICATION
     Dosage: 8 IU, 0?0?1?0, INJECTION/INFUSION SOLUTION
     Route: 058
  8. INDAPAMIDE. [Suspect]
     Active Substance: INDAPAMIDE
     Indication: PRODUCT USED FOR UNKNOWN INDICATION
     Dosage: 1.5 MG, 0.5?0?0?0, TABLETTEN
  9. EPLERENONE. [Concomitant]
     Active Substance: EPLERENONE
     Dosage: 25 MG, 1?0?0?0, TABLETTEN
  10. PANTOPRAZOL                        /01263201/ [Concomitant]
     Active Substance: PANTOPRAZOLE
     Dosage: 40 MG, 1?0?0?0, TABLETTEN

REACTIONS (6)
  - Electrolyte imbalance [Unknown]
  - Vomiting [Unknown]
  - Cold sweat [Unknown]
  - Hypophagia [Unknown]
  - Hypoglycaemia [Unknown]
  - Hypokalaemia [Unknown]
